FAERS Safety Report 24638816 (Version 3)
Quarter: 2025Q3

REPORT INFORMATION
  Report Type: Report from Study
  Country: EU (occurrence: EU)
  Receive Date: 20241119
  Receipt Date: 20250919
  Transmission Date: 20251020
  Serious: Yes (Hospitalization, Other)
  Sender: SUNOVION
  Company Number: EU-BIAL-BIAL-17723

PATIENT
  Age: 50 Year
  Sex: Male

DRUGS (8)
  1. ESLICARBAZEPINE ACETATE [Suspect]
     Active Substance: ESLICARBAZEPINE ACETATE
     Indication: Product used for unknown indication
  2. CENOBAMATE [Suspect]
     Active Substance: CENOBAMATE
     Indication: Epilepsy
     Dosage: 150 MILLIGRAM, QD (ON TREATMENT WITH 150 MG/DAY A MONTH AGO)
     Route: 048
     Dates: start: 20240612
  3. CENOBAMATE [Suspect]
     Active Substance: CENOBAMATE
     Dosage: 200 MILLIGRAM, QD
     Route: 048
  4. CENOBAMATE [Suspect]
     Active Substance: CENOBAMATE
     Route: 048
  5. VIMPAT [Concomitant]
     Active Substance: LACOSAMIDE
     Indication: Product used for unknown indication
     Dosage: UNK, BID (1-0-1)
  6. VIMPAT [Concomitant]
     Active Substance: LACOSAMIDE
  7. BRIVIACT [Concomitant]
     Active Substance: BRIVARACETAM
     Indication: Product used for unknown indication
     Dosage: 100 MG EVERY 12H (1-0-1)
  8. CLOBAZAM [Concomitant]
     Active Substance: CLOBAZAM
     Indication: Nervousness

REACTIONS (11)
  - Seizure [Not Recovered/Not Resolved]
  - Loss of consciousness [Not Recovered/Not Resolved]
  - Lip injury [Recovering/Resolving]
  - Drug interaction [Not Recovered/Not Resolved]
  - Nervousness [Not Recovered/Not Resolved]
  - Dizziness [Unknown]
  - Malaise [Unknown]
  - Fall [Unknown]
  - Off label use [Not Recovered/Not Resolved]
  - Drug ineffective [Not Recovered/Not Resolved]
  - Intentional product misuse [Unknown]
